FAERS Safety Report 6887213-4 (Version None)
Quarter: 2010Q3

REPORT INFORMATION
  Report Type: 
  Country: None (occurrence: None)
  Receive Date: 20100730
  Receipt Date: 20100723
  Transmission Date: 20110219
  Serious: Yes (Hospitalization, Other)
  Sender: FDA-Public Use
  Company Number: US-PFIZER INC-2007100180

PATIENT
  Sex: Male
  Weight: 67 kg

DRUGS (26)
  1. CHANTIX [Suspect]
     Indication: SMOKING CESSATION THERAPY
     Dosage: 0.5MG/ 1MG
     Dates: start: 20070517, end: 20071121
  2. ADVAIR DISKUS 100/50 [Concomitant]
     Indication: CHRONIC OBSTRUCTIVE PULMONARY DISEASE
     Dosage: UNK
     Route: 055
     Dates: start: 20060101, end: 20100101
  3. ADVAIR DISKUS 100/50 [Concomitant]
     Indication: BRONCHITIS
  4. ADVAIR DISKUS 100/50 [Concomitant]
     Indication: PNEUMONIA
  5. COMBIVENT [Concomitant]
     Indication: CHRONIC OBSTRUCTIVE PULMONARY DISEASE
     Dosage: UNK
     Route: 055
     Dates: start: 20060101, end: 20100101
  6. COMBIVENT [Concomitant]
     Indication: BRONCHITIS
  7. COMBIVENT [Concomitant]
     Indication: PNEUMONIA
  8. VIAGRA [Concomitant]
     Indication: ERECTILE DYSFUNCTION
     Dosage: UNK
     Dates: start: 20040101
  9. METRONIDAZOLE [Concomitant]
     Indication: SINUSITIS
     Dosage: UNK
     Dates: start: 20040101, end: 20090101
  10. METRONIDAZOLE [Concomitant]
     Indication: BRONCHITIS
  11. METRONIDAZOLE [Concomitant]
     Indication: DENTAL CARE
  12. METRONIDAZOLE [Concomitant]
     Indication: INFECTION
  13. METRONIDAZOLE [Concomitant]
     Indication: SURGERY
  14. AZITHROMYCIN [Concomitant]
     Indication: SINUSITIS
     Dosage: UNK
     Dates: start: 20040101, end: 20090101
  15. AZITHROMYCIN [Concomitant]
     Indication: BRONCHITIS
  16. AZITHROMYCIN [Concomitant]
     Indication: DENTAL CARE
  17. AZITHROMYCIN [Concomitant]
     Indication: INFECTION
  18. AZITHROMYCIN [Concomitant]
     Indication: SURGERY
  19. CIPROFLOXACIN [Concomitant]
     Indication: SINUSITIS
     Dosage: UNK
     Dates: start: 20040101, end: 20090101
  20. CIPROFLOXACIN [Concomitant]
     Indication: BRONCHITIS
  21. CIPROFLOXACIN [Concomitant]
     Indication: DENTAL CARE
  22. CIPROFLOXACIN [Concomitant]
     Indication: INFECTION
  23. CIPROFLOXACIN [Concomitant]
     Indication: SURGERY
  24. ALBUTEROL [Concomitant]
     Indication: CHRONIC OBSTRUCTIVE PULMONARY DISEASE
     Dosage: UNK
     Dates: start: 20060101, end: 20100101
  25. ALBUTEROL [Concomitant]
     Indication: BRONCHITIS
  26. ALBUTEROL [Concomitant]
     Indication: PNEUMONIA

REACTIONS (10)
  - ABNORMAL BEHAVIOUR [None]
  - AGGRESSION [None]
  - ANGER [None]
  - ANXIETY [None]
  - FEELING ABNORMAL [None]
  - INTENTIONAL OVERDOSE [None]
  - MAJOR DEPRESSION [None]
  - SCREAMING [None]
  - SUICIDE ATTEMPT [None]
  - TREMOR [None]
